FAERS Safety Report 7396288-8 (Version None)
Quarter: 2011Q2

REPORT INFORMATION
  Report Type: 
  Country: None (occurrence: None)
  Receive Date: 20110406
  Receipt Date: 20110330
  Transmission Date: 20111010
  Serious: Yes (Other)
  Sender: FDA-Public Use
  Company Number: FR-SANOFI-AVENTIS-2011SA019244

PATIENT
  Age: 65 Year
  Sex: Female

DRUGS (7)
  1. REMICADE [Suspect]
     Dates: start: 20061122
  2. PIROXICAM [Suspect]
     Dates: start: 20050101
  3. SPECIAFOLDINE [Suspect]
     Route: 048
     Dates: start: 20050101
  4. STILNOX [Suspect]
     Route: 048
     Dates: start: 20050101
  5. LODOZ [Suspect]
     Dates: start: 20070201
  6. EFFERALGAN CODEINE [Suspect]
     Route: 048
     Dates: start: 20061001
  7. METHOTREXATE [Suspect]
     Route: 048
     Dates: start: 20050101, end: 20110201

REACTIONS (2)
  - PULMONARY FIBROSIS [None]
  - INTERSTITIAL LUNG DISEASE [None]
